FAERS Safety Report 10748567 (Version 1)
Quarter: 2015Q1

REPORT INFORMATION
  Report Type: Spontaneous
  Country: US (occurrence: US)
  Receive Date: 20150129
  Receipt Date: 20150129
  Transmission Date: 20150721
  Serious: Yes (Death)
  Sender: FDA-Public Use
  Company Number: US-PFIZER INC-2015036325

PATIENT
  Age: 74 Year
  Sex: Male

DRUGS (1)
  1. XALKORI [Suspect]
     Active Substance: CRIZOTINIB
     Indication: LUNG NEOPLASM
     Dosage: 250 MG, TWICE DAILY
     Dates: start: 20141224

REACTIONS (1)
  - Death [Fatal]

NARRATIVE: CASE EVENT DATE: 20150117
